FAERS Safety Report 4373075-6 (Version None)
Quarter: 2004Q2

REPORT INFORMATION
  Report Type: 
  Country: None (occurrence: None)
  Receive Date: 20040526
  Receipt Date: 20040513
  Transmission Date: 20050107
  Serious: Yes (Life-Threatening)
  Sender: FDA-Public Use
  Company Number: 204757

PATIENT
  Age: 52 Year
  Sex: Male
  Weight: 113 kg

DRUGS (10)
  1. MABTHERA (RITUXIMAB) CONC FOR SOLUTION FOR INFUSION [Suspect]
     Indication: NON-HODGKIN'S LYMPHOMA
     Dosage: 940 MG
     Dates: start: 20031001, end: 20040109
  2. ANTIBIOTIC (ANTIBIOTIC NOS) [Suspect]
  3. CYCLOPHOSPHAMIDE [Concomitant]
  4. DOXORUBICIN HYDROCHLORIDE [Concomitant]
  5. VINCRISTINDE (VINCRISTINE SULFATE) [Concomitant]
  6. PREDNISONE TAB [Concomitant]
  7. CHLORTALIDON (CHLORTHALIDONE) [Concomitant]
  8. METOPROLOL TARTRATE [Concomitant]
  9. RAMIPRIL [Concomitant]
  10. PREDNISOLONE [Concomitant]

REACTIONS (7)
  - ACUTE RESPIRATORY DISTRESS SYNDROME [None]
  - DRUG TOXICITY [None]
  - GENERAL PHYSICAL HEALTH DETERIORATION [None]
  - OEDEMA [None]
  - PNEUMONITIS [None]
  - RESPIRATORY FAILURE [None]
  - WHITE BLOOD CELL COUNT DECREASED [None]
